FAERS Safety Report 16625810 (Version 3)
Quarter: 2019Q3

REPORT INFORMATION
  Report Type: Report from Study
  Country: PL (occurrence: PL)
  Receive Date: 20190724
  Receipt Date: 20190805
  Transmission Date: 20191004
  Serious: Yes (Hospitalization)
  Sender: FDA-Public Use
  Company Number: PL-PFIZER INC-2019308081

PATIENT
  Age: 77 Year
  Sex: Male
  Weight: 52.8 kg

DRUGS (6)
  1. ZOXON [DOXAZOSIN] [Concomitant]
     Indication: BENIGN PROSTATIC HYPERPLASIA
     Dosage: 1 MG, 1X/DAY
     Route: 048
     Dates: start: 2008
  2. CYCLONAMINE [Concomitant]
     Active Substance: ETHAMSYLATE
     Indication: HAEMORRHAGE
     Dosage: 250 MG, 3X/DAY
     Route: 048
     Dates: start: 20190531
  3. THIOGAMMA [Concomitant]
     Active Substance: .ALPHA.-LIPOIC ACID
     Indication: PAIN
     Dosage: 600 MG, 1X/DAY
     Route: 048
     Dates: start: 201901
  4. POLTRAM COMBO [Concomitant]
     Active Substance: ACETAMINOPHEN\TRAMADOL HYDROCHLORIDE
     Indication: PAIN
     Dosage: [PARACETAMOL 650MG]/ [TRAMADOL HYDROCHLORIDE 75MG], 3X/DAY
     Route: 048
     Dates: start: 201901
  5. AVELUMAB [Suspect]
     Active Substance: AVELUMAB
     Indication: NEOPLASM
     Dosage: 800 MG, EVERY 2 WEEKS
     Route: 042
     Dates: start: 20190327, end: 20190704
  6. AXITINIB [Suspect]
     Active Substance: AXITINIB
     Indication: NEOPLASM
     Dosage: 5 MG, EVERY DAY
     Route: 048
     Dates: start: 20190327, end: 20190716

REACTIONS (1)
  - Fatigue [Recovered/Resolved]

NARRATIVE: CASE EVENT DATE: 20190715
